FAERS Safety Report 6366258-7 (Version None)
Quarter: 2009Q3

REPORT INFORMATION
  Report Type: 
  Country: None (occurrence: None)
  Receive Date: 20090915
  Receipt Date: 20090831
  Transmission Date: 20100115
  Serious: Yes (Other)
  Sender: FDA-Public Use
  Company Number: AUR-APL-2009-00546

PATIENT
  Age: 75 Year

DRUGS (3)
  1. TORSEMIDE [Suspect]
     Indication: CARDIAC FAILURE
     Dosage: 20MG, DAILY,UNK
  2. LITHIUM [Suspect]
     Indication: BIPOLAR DISORDER
     Dosage: 660MG, DAILY, UNK
  3. ENALAPRIL MALEATE [Suspect]
     Indication: CARDIAC FAILURE
     Dosage: 20MG-DAILY-UNK

REACTIONS (9)
  - CHILLS [None]
  - DEMYELINATION [None]
  - DEPRESSED LEVEL OF CONSCIOUSNESS [None]
  - GAZE PALSY [None]
  - HYPERTONIA [None]
  - MYOCLONUS [None]
  - NEPHROGENIC DIABETES INSIPIDUS [None]
  - RENAL FAILURE ACUTE [None]
  - THERAPEUTIC AGENT TOXICITY [None]
